FAERS Safety Report 7971295-2 (Version None)
Quarter: 2011Q4

REPORT INFORMATION
  Report Type: 
  Country: None (occurrence: None)
  Receive Date: 20111212
  Receipt Date: 20110920
  Transmission Date: 20120403
  Serious: Yes (Hospitalization, Other)
  Sender: FDA-Public Use
  Company Number: US-BRISTOL-MYERS SQUIBB COMPANY-16036667

PATIENT
  Age: 68 Year
  Sex: Female

DRUGS (1)
  1. IXEMPRA KIT [Suspect]
     Indication: BREAST CANCER STAGE IV
     Route: 042
     Dates: start: 20110823

REACTIONS (8)
  - BONE PAIN [None]
  - FULL BLOOD COUNT DECREASED [None]
  - PLATELET COUNT DECREASED [None]
  - ARTHRALGIA [None]
  - MYALGIA [None]
  - NEUTROPENIA [None]
  - RECALL PHENOMENON [None]
  - SKIN EXFOLIATION [None]
